APPROVED DRUG PRODUCT: MICARDIS
Active Ingredient: TELMISARTAN
Strength: 20MG
Dosage Form/Route: TABLET;ORAL
Application: N020850 | Product #003
Applicant: BOEHRINGER INGELHEIM
Approved: Apr 4, 2000 | RLD: Yes | RS: No | Type: DISCN